FAERS Safety Report 5599943-5 (Version None)
Quarter: 2008Q1

REPORT INFORMATION
  Report Type: 
  Country: None (occurrence: None)
  Receive Date: 20080123
  Receipt Date: 20080115
  Transmission Date: 20080703
  Serious: Yes (Death)
  Sender: FDA-Public Use
  Company Number: US-ROCHE-541243

PATIENT
  Age: 55 Year
  Sex: Female
  Weight: 57.6 kg

DRUGS (7)
  1. ACCUTANE [Suspect]
     Indication: GLIOBLASTOMA MULTIFORME
     Route: 048
     Dates: start: 20071214, end: 20080103
  2. ACCUTANE [Suspect]
     Route: 048
     Dates: start: 20071113, end: 20071203
  3. DEXAMETHASONE TAB [Concomitant]
  4. CALCIUM NOS [Concomitant]
  5. NEXIUM [Concomitant]
  6. LISINOPRIL AND HYDROCHLOROTHIAZIDE [Concomitant]
     Indication: HYPERTENSION
  7. KEPPRA [Concomitant]

REACTIONS (1)
  - GLIOBLASTOMA MULTIFORME [None]
